FAERS Safety Report 6658126-8 (Version None)
Quarter: 2010Q1

REPORT INFORMATION
  Report Type: 
  Country: None (occurrence: None)
  Receive Date: 20100330
  Receipt Date: 20100322
  Transmission Date: 20100710
  Serious: Yes (Other)
  Sender: FDA-Public Use
  Company Number: US-AMGEN-KDL395054

PATIENT
  Sex: Female
  Weight: 77.2 kg

DRUGS (11)
  1. PROCRIT [Suspect]
     Indication: ANAEMIA OF MALIGNANT DISEASE
     Route: 065
     Dates: start: 20100217
  2. SYNTHROID [Concomitant]
  3. MORPHINE [Concomitant]
     Route: 048
  4. EFFEXOR XR [Concomitant]
  5. SIMVASTATIN [Concomitant]
  6. FEMARA [Concomitant]
  7. CELEBREX [Concomitant]
  8. AMBIEN [Concomitant]
  9. UNSPECIFIED MEDICATION [Concomitant]
  10. COREG [Concomitant]
  11. RAMIPRIL [Concomitant]

REACTIONS (2)
  - DEAFNESS [None]
  - EAR INFECTION [None]
